FAERS Safety Report 13399606 (Version 2)
Quarter: 2017Q2

REPORT INFORMATION
  Report Type: Spontaneous
  Country: FR (occurrence: FR)
  Receive Date: 20170404
  Receipt Date: 20170504
  Transmission Date: 20170830
  Serious: Yes (Hospitalization, Other)
  Sender: FDA-Public Use
  Company Number: FR-BEH-2017078307

PATIENT
  Age: 27 Year
  Sex: Female

DRUGS (5)
  1. RHOPHYLAC [Suspect]
     Active Substance: HUMAN RHO(D) IMMUNE GLOBULIN
     Indication: PROPHYLAXIS
     Dosage: 200 ?G, TOT, 200 MICROGRAMS/2 ML, 1 DF, 1 IN 1 SINGLE DOSE
     Route: 042
     Dates: start: 20161122
  2. LANOLIN. [Concomitant]
     Active Substance: LANOLIN
     Dosage: UNK
     Route: 065
     Dates: start: 201701
  3. IALUGEN [Concomitant]
     Dosage: UNK
     Route: 065
     Dates: start: 201701
  4. RHOPHYLAC [Suspect]
     Active Substance: HUMAN RHO(D) IMMUNE GLOBULIN
     Dosage: 200 ?G, TOT, 200 MICROGRAMS/2 ML, 1 DF, 1 IN 1 SINGLE DOSE
     Route: 042
     Dates: start: 20170131
  5. LANSINOH [Concomitant]
     Route: 065

REACTIONS (4)
  - Rash [Recovered/Resolved]
  - Chills [Recovering/Resolving]
  - Biopsy skin abnormal [Unknown]
  - Dermatitis [Unknown]

NARRATIVE: CASE EVENT DATE: 20170205
